FAERS Safety Report 25234510 (Version 1)
Quarter: 2025Q2

REPORT INFORMATION
  Report Type: Spontaneous
  Country: KR (occurrence: KR)
  Receive Date: 20250424
  Receipt Date: 20250424
  Transmission Date: 20250717
  Serious: Yes (Other)
  Sender: MYLAN
  Company Number: KR-MYLANLABS-2025M1035119

PATIENT
  Sex: Male

DRUGS (4)
  1. ZELDOX [Suspect]
     Active Substance: ZIPRASIDONE
     Indication: Hemiplegia
     Dosage: 1 DOSAGE FORM, QD
     Dates: start: 20211213
  2. ZELDOX [Suspect]
     Active Substance: ZIPRASIDONE
     Dosage: 1 DOSAGE FORM, QD
     Route: 065
     Dates: start: 20211213
  3. ZELDOX [Suspect]
     Active Substance: ZIPRASIDONE
     Dosage: 1 DOSAGE FORM, QD
     Route: 065
     Dates: start: 20211213
  4. ZELDOX [Suspect]
     Active Substance: ZIPRASIDONE
     Dosage: 1 DOSAGE FORM, QD
     Dates: start: 20211213

REACTIONS (2)
  - Facial myokymia [Unknown]
  - Off label use [Unknown]

NARRATIVE: CASE EVENT DATE: 20211213
